FAERS Safety Report 7266513-2 (Version None)
Quarter: 2011Q1

REPORT INFORMATION
  Report Type: 
  Country: None (occurrence: None)
  Receive Date: 20110131
  Receipt Date: 20110125
  Transmission Date: 20110831
  Serious: Yes (Hospitalization, Disabling, Other)
  Sender: FDA-Public Use
  Company Number: US-PFIZER INC-2010146137

PATIENT
  Sex: Female

DRUGS (3)
  1. NAPROXEN [Concomitant]
     Indication: INFLAMMATION
     Dosage: UNK
     Dates: start: 20070101
  2. IBUPROFEN [Concomitant]
     Indication: PAIN
     Dosage: UNK
     Dates: start: 20060101
  3. CHANTIX [Suspect]
     Indication: SMOKING CESSATION THERAPY
     Dosage: 1 MG, UNK
     Dates: start: 20080401, end: 20080510

REACTIONS (12)
  - BORDERLINE PERSONALITY DISORDER [None]
  - IRRITABILITY [None]
  - BIPOLAR DISORDER [None]
  - ANXIETY [None]
  - ANGER [None]
  - PARANOIA [None]
  - HOMICIDAL IDEATION [None]
  - DEPRESSION [None]
  - INTENTIONAL SELF-INJURY [None]
  - SUICIDAL IDEATION [None]
  - MOOD SWINGS [None]
  - AGGRESSION [None]
